FAERS Safety Report 9629955 (Version 1)
Quarter: 2013Q4

REPORT INFORMATION
  Report Type: Spontaneous
  Country: IT (occurrence: IT)
  Receive Date: 20131017
  Receipt Date: 20131017
  Transmission Date: 20140711
  Serious: Yes (Other)
  Sender: FDA-Public Use
  Company Number: IT-ACTAVIS-2013-18666

PATIENT
  Age: 73 Year
  Sex: Female

DRUGS (1)
  1. TRAMADOL [Suspect]
     Indication: NECK PAIN
     Dosage: 100 MG, PRN
     Route: 048
     Dates: start: 20130511, end: 20130513

REACTIONS (3)
  - Disorientation [Recovering/Resolving]
  - Sopor [Recovering/Resolving]
  - Lack of spontaneous speech [Recovering/Resolving]
